FAERS Safety Report 14029229 (Version 1)
Quarter: 2017Q4

REPORT INFORMATION
  Report Type: Spontaneous
  Country: US (occurrence: None)
  Receive Date: 20171002
  Receipt Date: 20171002
  Transmission Date: 20180321
  Serious: Yes (Hospitalization)
  Sender: FDA-Public Use
  Company Number: None

PATIENT
  Age: 24 Year
  Sex: Female
  Weight: 77.11 kg

DRUGS (1)
  1. NEXPLANON [Suspect]
     Active Substance: ETONOGESTREL

REACTIONS (5)
  - Vulvovaginal discomfort [None]
  - Vaginal infection [None]
  - Burning sensation [None]
  - Pain [None]
  - Bacterial vaginosis [None]

NARRATIVE: CASE EVENT DATE: 20171002
